FAERS Safety Report 8734378 (Version 2)
Quarter: 2015Q2

REPORT INFORMATION
  Report Type: Report from Study
  Country: US (occurrence: US)
  Receive Date: 20120821
  Receipt Date: 20150406
  Transmission Date: 20150821
  Serious: Yes (Hospitalization)
  Sender: FDA-Public Use
  Company Number: US-ROCHE-1101362

PATIENT
  Sex: Male

DRUGS (10)
  1. NITRO SUBLINGUAL [Concomitant]
  2. ACTIVASE [Suspect]
     Active Substance: ALTEPLASE
     Indication: MYOCARDIAL INFARCTION
     Route: 065
  3. BRETYLIUM [Concomitant]
  4. MORPHINE SULFATE. [Concomitant]
     Active Substance: MORPHINE SULFATE
  5. HEPARIN [Concomitant]
     Active Substance: HEPARIN SODIUM
  6. LIDOCAINE. [Concomitant]
     Active Substance: LIDOCAINE
  7. MAGNESIUM SULFATE. [Concomitant]
     Active Substance: MAGNESIUM SULFATE
  8. XANAX [Concomitant]
     Active Substance: ALPRAZOLAM
     Route: 065
  9. EPINEPHRINE. [Concomitant]
     Active Substance: EPINEPHRINE
  10. BICARB [Concomitant]

REACTIONS (6)
  - General physical health deterioration [Unknown]
  - Acidosis [Unknown]
  - Chest pain [Unknown]
  - Ventricular tachycardia [Unknown]
  - Pulmonary oedema [Unknown]
  - Hypotension [Unknown]
